FAERS Safety Report 7014909-6 (Version None)
Quarter: 2010Q3

REPORT INFORMATION
  Report Type: 
  Country: None (occurrence: None)
  Receive Date: 20100927
  Receipt Date: 20100630
  Transmission Date: 20110219
  Serious: No
  Sender: FDA-Public Use
  Company Number: US-ASTRAZENECA-2010SE30716

PATIENT
  Age: 69 Year
  Sex: Female
  Weight: 98.4 kg

DRUGS (4)
  1. ARIMIDEX [Suspect]
     Indication: BREAST CANCER
     Route: 048
     Dates: start: 20051001
  2. FOSAMAX [Suspect]
     Indication: BREAST CANCER
     Route: 065
     Dates: end: 20100601
  3. ASPIRIN [Concomitant]
  4. SYNTHROID [Concomitant]

REACTIONS (3)
  - HYPERURICAEMIA [None]
  - SARCOIDOSIS [None]
  - URTICARIA [None]
